FAERS Safety Report 26130647 (Version 1)
Quarter: 2025Q4

REPORT INFORMATION
  Report Type: Spontaneous
  Country: US (occurrence: None)
  Receive Date: 20251205
  Receipt Date: 20251205
  Transmission Date: 20260117
  Serious: Yes (Hospitalization)
  Sender: FDA-CTU
  Company Number: None

PATIENT
  Sex: Female

DRUGS (1)
  1. TEZSPIRE [Suspect]
     Active Substance: TEZEPELUMAB-EKKO
     Indication: Asthma
     Dosage: OTHER QUANTITY : 1 PEN UNDER THE SKIN;?FREQUENCY : MONTHLY;
     Route: 058
     Dates: start: 20250729

REACTIONS (4)
  - Asthma [None]
  - Dyspnoea [None]
  - Infection [None]
  - Quality of life decreased [None]
